FAERS Safety Report 9369732 (Version 2)
Quarter: 2013Q3

REPORT INFORMATION
  Report Type: Spontaneous
  Country: US (occurrence: US)
  Receive Date: 20130626
  Receipt Date: 20130731
  Transmission Date: 20140515
  Serious: Yes (Hospitalization)
  Sender: FDA-Public Use
  Company Number: US-JNJFOC-20130609404

PATIENT
  Age: 29 Year
  Sex: Male
  Weight: 63.96 kg

DRUGS (10)
  1. INVEGA SUSTENNA [Suspect]
     Indication: TREATMENT NONCOMPLIANCE
     Route: 030
     Dates: start: 20130128
  2. INVEGA SUSTENNA [Suspect]
     Indication: THINKING ABNORMAL
     Route: 030
     Dates: start: 20130128
  3. INVEGA SUSTENNA [Suspect]
     Indication: AFFECTIVE DISORDER
     Route: 030
     Dates: start: 20130128
  4. REMERON [Concomitant]
     Indication: IRRITABILITY
     Route: 065
     Dates: start: 20120910
  5. REMERON [Concomitant]
     Indication: INSOMNIA
     Route: 065
     Dates: start: 20120910
  6. REMERON [Concomitant]
     Indication: DEPRESSION
     Route: 065
     Dates: start: 20120910
  7. REMERON [Concomitant]
     Indication: ANXIETY
     Route: 065
     Dates: start: 20120910
  8. BENZTROPINE [Concomitant]
     Indication: TREMOR
     Route: 065
     Dates: start: 20130207
  9. CLONIDINE [Concomitant]
     Indication: IMPULSIVE BEHAVIOUR
     Route: 065
     Dates: start: 20080818
  10. CLONIDINE [Concomitant]
     Indication: ANGER
     Route: 065
     Dates: start: 20080818

REACTIONS (4)
  - Haemoptysis [Unknown]
  - Nausea [Unknown]
  - Eye swelling [Unknown]
  - Drug dose omission [Unknown]
